FAERS Safety Report 12993975 (Version 1)
Quarter: 2016Q4

REPORT INFORMATION
  Report Type: Spontaneous
  Country: JP (occurrence: JP)
  Receive Date: 20161202
  Receipt Date: 20161202
  Transmission Date: 20170207
  Serious: Yes (Other)
  Sender: FDA-Public Use
  Company Number: JP-AMGEN-JPNSP2016168384

PATIENT
  Sex: Female

DRUGS (1)
  1. ENBREL [Suspect]
     Active Substance: ETANERCEPT
     Indication: MYALGIA
     Dosage: UNK UNK, WEEKLY (ON WEDNESDAY)
     Route: 058
     Dates: start: 201404

REACTIONS (6)
  - Product use issue [Unknown]
  - Varicose vein [Unknown]
  - Pyelonephritis [Unknown]
  - Cholecystitis [Unknown]
  - Asthma [Unknown]
  - Hypertension [Unknown]

NARRATIVE: CASE EVENT DATE: 201606
